FAERS Safety Report 8334476-4 (Version None)
Quarter: 2012Q2

REPORT INFORMATION
  Report Type: 
  Country: None (occurrence: None)
  Receive Date: 20120503
  Receipt Date: 20120418
  Transmission Date: 20120825
  Serious: Yes (Other)
  Sender: FDA-Public Use
  Company Number: CN-JNJFOC-20120502662

PATIENT
  Sex: Male
  Weight: 55 kg

DRUGS (1)
  1. KETOCONAZOLE [Suspect]
     Indication: TINEA PEDIS
     Route: 061
     Dates: start: 20111015, end: 20111016

REACTIONS (1)
  - ANAPHYLACTIC REACTION [None]
